FAERS Safety Report 4583768-3 (Version None)
Quarter: 2005Q1

REPORT INFORMATION
  Report Type: 
  Country: None (occurrence: None)
  Receive Date: 20050216
  Receipt Date: 20050117
  Transmission Date: 20050727
  Serious: Yes (Other)
  Sender: FDA-Public Use
  Company Number: 200510183JP

PATIENT
  Age: 76 Year
  Sex: Female
  Weight: 38 kg

DRUGS (6)
  1. KETEK [Suspect]
     Route: 048
     Dates: start: 20050106, end: 20050114
  2. MILLACT [Concomitant]
     Indication: DIARRHOEA
     Route: 048
     Dates: start: 20041222
  3. MYSLEE [Concomitant]
     Indication: INSOMNIA
     Route: 048
     Dates: start: 20041222
  4. LAC B [Concomitant]
     Indication: DIARRHOEA
     Route: 048
     Dates: start: 20041222
  5. TANNALBIN [Concomitant]
     Indication: DIARRHOEA
     Route: 048
     Dates: start: 20041222, end: 20050110
  6. DORAL [Concomitant]
     Indication: INSOMNIA
     Route: 048
     Dates: start: 20041228

REACTIONS (14)
  - BLOOD PRESSURE INCREASED [None]
  - CHEST X-RAY ABNORMAL [None]
  - DISORIENTATION [None]
  - DRUG INTERACTION [None]
  - DYSPNOEA [None]
  - HYPOXIA [None]
  - INFLAMMATION [None]
  - LOSS OF CONSCIOUSNESS [None]
  - MEDICATION ERROR [None]
  - PYREXIA [None]
  - RESPIRATORY ACIDOSIS [None]
  - SINUS TACHYCARDIA [None]
  - SPUTUM RETENTION [None]
  - STRIDOR [None]
